FAERS Safety Report 16715115 (Version 3)
Quarter: 2019Q3

REPORT INFORMATION
  Report Type: Spontaneous
  Country: US (occurrence: US)
  Receive Date: 20190819
  Receipt Date: 20190920
  Transmission Date: 20191005
  Serious: No
  Sender: FDA-Public Use
  Company Number: US-PFIZER INC-2018161259

PATIENT
  Age: 74 Year
  Sex: Female
  Weight: 78.93 kg

DRUGS (10)
  1. BI EST [Concomitant]
     Active Substance: ESTRADIOL\ESTRIOL
     Indication: HORMONE LEVEL ABNORMAL
     Dosage: 1 GTT, 1X/DAY (1 DROP)
     Route: 060
  2. KETOCONAZOLE. [Concomitant]
     Active Substance: KETOCONAZOLE
     Indication: RASH
     Dosage: UNK, (ONCE A DAY 2 TO 3 TIMES A WEEK)
  3. LYRICA [Suspect]
     Active Substance: PREGABALIN
     Indication: NEURALGIA
     Dosage: 200 MG, DAILY (TAKE 1 CAPSULE BY MOUTH NIGHTLY)
     Route: 048
     Dates: start: 20190814
  4. PROGESTERONE. [Concomitant]
     Active Substance: PROGESTERONE
     Indication: HORMONE LEVEL ABNORMAL
     Dosage: 50 MG, 1X/DAY
     Route: 060
  5. HYDROCORTISONE. [Concomitant]
     Active Substance: HYDROCORTISONE
     Indication: RASH
     Dosage: UNK, 3X/DAY
     Route: 061
  6. HYDROCHLOROTHIAZIDE. [Concomitant]
     Active Substance: HYDROCHLOROTHIAZIDE
     Indication: HYPERTENSION
     Dosage: 25 MG, 1X/DAY
     Route: 048
  7. MOMETASONE [Concomitant]
     Active Substance: MOMETASONE
     Indication: RASH
     Dosage: UNK, (ONCE A DAY, 3 TIMES A WEEK)
     Route: 061
  8. FLEXERIL [Concomitant]
     Active Substance: CYCLOBENZAPRINE HYDROCHLORIDE
     Indication: MUSCLE RELEASE
     Dosage: 30 MG, 3X/DAY (THREE TABLETS, THREE TIMES A DAY)
     Route: 048
     Dates: start: 1990
  9. PROZAC [Concomitant]
     Active Substance: FLUOXETINE HYDROCHLORIDE
     Indication: DEPRESSION
     Dosage: 30 MG, 1X/DAY
     Route: 048
  10. LYRICA [Suspect]
     Active Substance: PREGABALIN
     Indication: FIBROMYALGIA
     Dosage: 200 MG, 1X/DAY (TAKE 1 CAPSULE BY MOUTH NIGHTLY)
     Route: 048

REACTIONS (1)
  - Tremor [Unknown]
